FAERS Safety Report 9235205 (Version 2)
Quarter: 2013Q2

REPORT INFORMATION
  Report Type: Spontaneous
  Country: US (occurrence: US)
  Receive Date: 20130417
  Receipt Date: 20130517
  Transmission Date: 20140414
  Serious: No
  Sender: FDA-Public Use
  Company Number: US-009507513-1304USA006499

PATIENT
  Age: 24 Year
  Sex: Female
  Weight: 90.25 kg

DRUGS (2)
  1. NUVARING [Suspect]
     Indication: CONTRACEPTION
     Dosage: 1 DF, UNK
     Route: 067
     Dates: start: 20130318
  2. NUVARING [Suspect]
     Dosage: 1 DF, UNK
     Route: 067
     Dates: start: 20130409

REACTIONS (4)
  - Menstrual disorder [Unknown]
  - Inappropriate schedule of drug administration [Unknown]
  - Product colour issue [Unknown]
  - Drug prescribing error [Unknown]
